FAERS Safety Report 9580827 (Version 4)
Quarter: 2013Q4

REPORT INFORMATION
  Report Type: Report from Study
  Country: PT (occurrence: PT)
  Receive Date: 20131002
  Receipt Date: 20131030
  Transmission Date: 20140711
  Serious: Yes (Hospitalization)
  Sender: FDA-Public Use
  Company Number: PT-ROCHE-1280213

PATIENT
  Age: 57 Year
  Sex: Female
  Weight: 68 kg

DRUGS (12)
  1. PERTUZUMAB [Suspect]
     Indication: HER-2 POSITIVE BREAST CANCER
     Dosage: PERMANENTLY DISCONTINUED DUE TO SAE.
     Route: 042
     Dates: start: 20130919, end: 20130919
  2. PERTUZUMAB [Suspect]
     Dosage: MAINTENANCE DOSE
     Route: 042
     Dates: end: 20131004
  3. LANTUS [Concomitant]
     Dosage: TAKEN AFTER DINNER
     Route: 065
     Dates: start: 201306
  4. ACETAMINOPHEN/TRAMADOL HYDROCHLORIDE [Concomitant]
     Dosage: DAILY DOSE: TRAMADOL/PARACETAMOL 37.5/325 MG.
     Route: 065
     Dates: start: 20130816
  5. LEPICORTINOLO [Concomitant]
     Dosage: TAKEN AT BREAKFAST
     Route: 065
     Dates: start: 20130915, end: 20130930
  6. LEPICORTINOLO [Concomitant]
     Route: 065
     Dates: start: 20130915, end: 20130930
  7. PRITOR (PORTUGAL) [Concomitant]
     Route: 065
     Dates: start: 201306
  8. DIAMICRON [Concomitant]
     Route: 065
     Dates: start: 201306
  9. JANUMET [Concomitant]
     Dosage: 1 PILL AT LUNCH AND 1 AT DINNER
     Route: 065
     Dates: start: 201306
  10. CODIPRONT (PORTUGAL) [Concomitant]
     Dosage: 2.22+0.733MG/ML
     Route: 065
     Dates: start: 20130915, end: 20130930
  11. IBUPROFENO [Concomitant]
     Route: 065
     Dates: start: 20130816
  12. METOCLOPRAMIDE [Concomitant]
     Indication: PROPHYLAXIS OF NAUSEA AND VOMITING
     Route: 065
     Dates: start: 20130919

REACTIONS (1)
  - Infusion related reaction [Recovered/Resolved]
